FAERS Safety Report 9486883 (Version 1)
Quarter: 2013Q3

REPORT INFORMATION
  Report Type: Spontaneous
  Country: US (occurrence: None)
  Receive Date: 20130827
  Receipt Date: 20130827
  Transmission Date: 20140515
  Serious: Yes (Other)
  Sender: FDA-Public Use
  Company Number: 2013P1018702

PATIENT
  Age: 23 Year
  Sex: Male

DRUGS (10)
  1. FLUOXETINE [Suspect]
     Indication: DEPRESSION
  2. FLUOXETINE [Suspect]
     Indication: ANXIETY
  3. REMIFENTANIL [Suspect]
     Dosage: 0.2 MCG/KG/MINUTE; IV
     Route: 042
  4. FENTANYL [Suspect]
     Indication: INDUCTION OF ANAESTHESIA
  5. UNSPECIFIED ^ORAL OPIOID ANALGESICS^ [Suspect]
     Route: 048
  6. DIAZEPAM [Concomitant]
  7. MIDAZOLAM [Concomitant]
  8. BUPIVACAINE [Concomitant]
  9. EPINEPHRINE [Concomitant]
  10. PROPOFOL [Concomitant]

REACTIONS (2)
  - Serotonin syndrome [None]
  - Drug interaction [None]
